FAERS Safety Report 7540258-3 (Version None)
Quarter: 2011Q2

REPORT INFORMATION
  Report Type: 
  Country: None (occurrence: None)
  Receive Date: 20110610
  Receipt Date: 20110530
  Transmission Date: 20111010
  Serious: Yes (Other)
  Sender: FDA-Public Use
  Company Number: PHHY2011GR47384

PATIENT
  Age: 66 Year
  Sex: Female

DRUGS (10)
  1. LASIX [Concomitant]
  2. SINTROM [Concomitant]
  3. LERCANIDIPINE [Concomitant]
  4. DIGOXIN [Concomitant]
  5. INSPRA [Concomitant]
  6. RABEPRAZOLE SODIUM [Concomitant]
  7. SANDIMMUNE [Suspect]
  8. PHYSIOTENS [Concomitant]
  9. LOBIVON [Concomitant]
  10. DIOVAN [Concomitant]

REACTIONS (3)
  - BLINDNESS UNILATERAL [None]
  - MEMORY IMPAIRMENT [None]
  - CEREBROVASCULAR ACCIDENT [None]
